FAERS Safety Report 6154833-4 (Version None)
Quarter: 2009Q2

REPORT INFORMATION
  Report Type: 
  Country: None (occurrence: None)
  Receive Date: 20090414
  Receipt Date: 20090403
  Transmission Date: 20091009
  Serious: Yes (Other)
  Sender: FDA-Public Use
  Company Number: US-PFIZER INC-2009195933

PATIENT
  Sex: Male

DRUGS (2)
  1. LOPID [Suspect]
     Dosage: 600 MG, 2X/DAY
     Dates: start: 20081222, end: 20090121
  2. TARGRETIN [Suspect]
     Indication: T-CELL LYMPHOMA
     Dosage: 4500 MG, UNK
     Dates: start: 20081110, end: 20090120

REACTIONS (1)
  - PANCREATIC CARCINOMA [None]
